FAERS Safety Report 4679945-3 (Version None)
Quarter: 2005Q2

REPORT INFORMATION
  Report Type: 
  Country: None (occurrence: None)
  Receive Date: 20050531
  Receipt Date: 20050516
  Transmission Date: 20051028
  Serious: Yes (Hospitalization)
  Sender: FDA-Public Use
  Company Number: B0381829A

PATIENT
  Age: 76 Year
  Sex: Male

DRUGS (11)
  1. HYCAMTIN [Suspect]
     Indication: SMALL CELL LUNG CANCER STAGE UNSPECIFIED
     Dosage: INTRAVENOUS
     Route: 042
     Dates: start: 20031215, end: 20031219
  2. CISPLATIN [Concomitant]
  3. IRINOTECAN [Concomitant]
  4. COWPOX VIRUS VACCINE [Concomitant]
  5. MECOBALAMIN [Concomitant]
  6. NIFEDIPINE [Concomitant]
  7. MAGNESIUM SALT [Concomitant]
  8. TRIAZOLAM [Concomitant]
  9. SENNOSIDES [Concomitant]
  10. TPN [Concomitant]
  11. METOCLOPRAMIDE [Concomitant]

REACTIONS (5)
  - ANAEMIA [None]
  - MALIGNANT NEOPLASM PROGRESSION [None]
  - SMALL CELL LUNG CANCER STAGE UNSPECIFIED [None]
  - WHITE BLOOD CELL COUNT ABNORMAL [None]
  - WHITE BLOOD CELL COUNT DECREASED [None]
